FAERS Safety Report 9670740 (Version 1)
Quarter: 2013Q4

REPORT INFORMATION
  Report Type: Spontaneous
  Country: US (occurrence: US)
  Receive Date: 20131106
  Receipt Date: 20131106
  Transmission Date: 20140711
  Serious: No
  Sender: FDA-Public Use
  Company Number: US-ENDO PHARMACEUTICALS INC.-HYDR20120008

PATIENT
  Age: 61 Year
  Sex: Female

DRUGS (1)
  1. HYDROCORTISONE TABLETS 5MG [Suspect]
     Indication: ADDISON^S DISEASE
     Dosage: 5 MG
     Route: 048
     Dates: start: 2012

REACTIONS (1)
  - Drug ineffective [Not Recovered/Not Resolved]
